FAERS Safety Report 8360888-9 (Version None)
Quarter: 2012Q2

REPORT INFORMATION
  Report Type: 
  Country: None (occurrence: None)
  Receive Date: 20120515
  Receipt Date: 20120502
  Transmission Date: 20120825
  Serious: Yes (Hospitalization, Other)
  Sender: FDA-Public Use
  Company Number: NO-CELGENEUS-122-20785-12031537

PATIENT
  Age: 14 Year
  Sex: Male
  Weight: 75 kg

DRUGS (11)
  1. THALIDOMIDE [Suspect]
     Dosage: 50 MILLIGRAM
     Route: 048
  2. CELECOXIB [Suspect]
     Dosage: 100 MILLIGRAM
     Route: 048
  3. DEXAMETHASONE [Concomitant]
     Route: 048
  4. CYTARABINE [Suspect]
     Indication: MEDULLOBLASTOMA
     Route: 037
  5. CYTARABINE [Suspect]
     Route: 037
  6. CELECOXIB [Suspect]
     Indication: MEDULLOBLASTOMA
     Dosage: 800 MILLIGRAM
     Route: 048
  7. ETOPOSIDE [Suspect]
     Indication: MEDULLOBLASTOMA
     Dosage: 100 MILLIGRAM
     Route: 048
  8. ETOPOSIDE [Suspect]
     Dosage: 12.5 MILLIGRAM
     Route: 048
  9. DEXAMETHASONE [Concomitant]
     Indication: PROPHYLAXIS
     Dosage: 8 MILLIGRAM
     Route: 048
  10. THALIDOMIDE [Suspect]
     Indication: MEDULLOBLASTOMA
     Dosage: 200 MILLIGRAM
     Route: 048
  11. PREDNISOLONE SUCCINATE [Concomitant]
     Indication: PROPHYLAXIS
     Dosage: 20 MILLIGRAM
     Route: 065

REACTIONS (8)
  - MUCOSAL INFLAMMATION [None]
  - FATIGUE [None]
  - SOMNOLENCE [None]
  - SINUSITIS [None]
  - FALL [None]
  - FEBRILE NEUTROPENIA [None]
  - ARACHNOIDITIS [None]
  - DEAFNESS [None]
